FAERS Safety Report 20660284 (Version 1)
Quarter: 2022Q1

REPORT INFORMATION
  Report Type: Spontaneous
  Country: BR (occurrence: BR)
  Receive Date: 20220331
  Receipt Date: 20220331
  Transmission Date: 20220423
  Serious: Yes (Hospitalization, Other)
  Sender: FDA-Public Use
  Company Number: BR-PFIZER INC-202200482241

PATIENT
  Sex: Female

DRUGS (2)
  1. ALPRAZOLAM [Suspect]
     Active Substance: ALPRAZOLAM
     Dosage: 2 MG
  2. ALPRAZOLAM [Suspect]
     Active Substance: ALPRAZOLAM
     Dosage: 1 MG

REACTIONS (25)
  - Withdrawal syndrome [Unknown]
  - Respiratory depression [Unknown]
  - Gastrointestinal oedema [Unknown]
  - Drug effect less than expected [Unknown]
  - Blood pressure decreased [Unknown]
  - Abdominal pain upper [Unknown]
  - Tremor [Unknown]
  - Dyspnoea [Unknown]
  - Colitis [Unknown]
  - Malaise [Unknown]
  - Flatulence [Unknown]
  - Dizziness [Unknown]
  - Headache [Unknown]
  - Balance disorder [Unknown]
  - Labyrinthitis [Unknown]
  - Decreased appetite [Unknown]
  - Visual impairment [Unknown]
  - Heart rate increased [Unknown]
  - Anxiety [Unknown]
  - Depressed mood [Unknown]
  - Gastritis [Unknown]
  - Skin injury [Unknown]
  - Dermatitis allergic [Unknown]
  - Dysgeusia [Unknown]
  - Insomnia [Unknown]
